FAERS Safety Report 21837806 (Version 2)
Quarter: 2023Q1

REPORT INFORMATION
  Report Type: Spontaneous
  Country: US (occurrence: US)
  Receive Date: 20230109
  Receipt Date: 20230222
  Transmission Date: 20230418
  Serious: Yes (Death, Hospitalization, Other)
  Sender: FDA-Public Use
  Company Number: US-PFIZER INC-202300004680

PATIENT
  Age: 78 Year
  Sex: Male
  Weight: 81.65 kg

DRUGS (2)
  1. VYNDAMAX [Suspect]
     Active Substance: TAFAMIDIS
     Indication: Cardiac amyloidosis
     Dosage: 61 MG, 1X/DAY
     Dates: start: 2018, end: 202212
  2. VYNDAMAX [Suspect]
     Active Substance: TAFAMIDIS
     Dosage: 120 MG, DAILY
     Dates: start: 2018

REACTIONS (5)
  - Cardiac failure congestive [Fatal]
  - Cardiac arrest [Unknown]
  - General physical health deterioration [Unknown]
  - Myocardial infarction [Unknown]
  - Overdose [Unknown]

NARRATIVE: CASE EVENT DATE: 20180101
